FAERS Safety Report 25911662 (Version 1)
Quarter: 2025Q4

REPORT INFORMATION
  Report Type: Spontaneous
  Country: US (occurrence: US)
  Receive Date: 20251013
  Receipt Date: 20251013
  Transmission Date: 20260118
  Serious: Yes (Other)
  Sender: SANDOZ
  Company Number: US-INCYTE CORPORATION-2024IN013823

PATIENT
  Sex: Female

DRUGS (4)
  1. JAKAFI [Suspect]
     Active Substance: RUXOLITINIB
     Dosage: 20 MG, QD, 10 MG, BID
     Route: 048
  2. JAKAFI [Suspect]
     Active Substance: RUXOLITINIB
     Indication: Polycythaemia vera
     Dosage: 20 MG, QD, 10 MG, BID
     Route: 048
     Dates: start: 202201
  3. ROSUVASTATIN [Suspect]
     Active Substance: ROSUVASTATIN
     Indication: Product used for unknown indication
     Dosage: UNK
     Route: 065
  4. HYDROXYUREA [Concomitant]
     Active Substance: HYDROXYUREA
     Indication: Polycythaemia vera
     Dosage: UNK
     Route: 065

REACTIONS (6)
  - Haematemesis [Unknown]
  - Arthropathy [Unknown]
  - Blood cholesterol increased [Unknown]
  - Procedural haemorrhage [Unknown]
  - Haemorrhage [Unknown]
  - Haematoma muscle [Unknown]
